FAERS Safety Report 21498376 (Version 3)
Quarter: 2022Q4

REPORT INFORMATION
  Report Type: Report from Study
  Country: KR (occurrence: KR)
  Receive Date: 20221024
  Receipt Date: 20221107
  Transmission Date: 20230113
  Serious: Yes (Hospitalization, Other)
  Sender: FDA-Public Use
  Company Number: KR-BRISTOL-MYERS SQUIBB COMPANY-2022-123282

PATIENT
  Age: 56 Year
  Sex: Male
  Weight: 63.9 kg

DRUGS (16)
  1. LENALIDOMIDE [Suspect]
     Active Substance: LENALIDOMIDE
     Indication: Non-Hodgkin^s lymphoma
     Dosage: EVERY DAY
     Route: 048
     Dates: start: 20220203, end: 20221007
  2. MOSUNETUZUMAB [Suspect]
     Active Substance: MOSUNETUZUMAB
     Indication: Non-Hodgkin^s lymphoma
     Route: 042
     Dates: start: 20220113
  3. MOSUNETUZUMAB [Suspect]
     Active Substance: MOSUNETUZUMAB
     Route: 042
     Dates: start: 20220927
  4. ACTINAMIDE [Concomitant]
     Indication: Vitamin B12 deficiency
     Route: 030
     Dates: start: 20211125
  5. ASPIRIN [ACETYLSALICYCLIC ACID] [Concomitant]
     Indication: Vitamin B12 deficiency
     Route: 048
     Dates: start: 20220509, end: 20221007
  6. BEAROBAN [Concomitant]
     Indication: Blister
     Route: 062
     Dates: start: 20220628
  7. PAXLOVID [Concomitant]
     Active Substance: NIRMATRELVIR\RITONAVIR
     Indication: COVID-19
     Route: 048
     Dates: start: 20220917, end: 20220921
  8. PELUBI [Concomitant]
     Indication: COVID-19
     Route: 048
     Dates: start: 20220917, end: 20220923
  9. ACETAMINOPHEN [Concomitant]
     Active Substance: ACETAMINOPHEN
     Indication: COVID-19
     Route: 048
     Dates: start: 20220927, end: 20220927
  10. ACETAMINOPHEN [Concomitant]
     Active Substance: ACETAMINOPHEN
     Route: 048
     Dates: start: 20220917, end: 20220923
  11. BROMELZYME [Concomitant]
     Indication: COVID-19
     Route: 048
     Dates: start: 20220917, end: 20220923
  12. AMBROXOL [Concomitant]
     Active Substance: AMBROXOL
     Indication: COVID-19
     Route: 048
     Dates: start: 20220917, end: 20220923
  13. GABAMIN [REBAMIPIDE] [Concomitant]
     Indication: COVID-19
     Route: 048
     Dates: start: 20220917, end: 20220923
  14. COUGHONA [Concomitant]
     Indication: COVID-19
     Route: 048
     Dates: start: 20220917, end: 20220919
  15. DEXAMETHASONE [Concomitant]
     Active Substance: DEXAMETHASONE
     Indication: Product used for unknown indication
     Route: 042
     Dates: start: 20220927, end: 20220927
  16. PENIRAMIN [Concomitant]
     Indication: Product used for unknown indication
     Route: 042
     Dates: start: 20220927, end: 20220927

REACTIONS (1)
  - Seizure [Recovered/Resolved]

NARRATIVE: CASE EVENT DATE: 20221007
